FAERS Safety Report 11969159 (Version 1)
Quarter: 2016Q1

REPORT INFORMATION
  Report Type: Report from Study
  Country: US (occurrence: US)
  Receive Date: 20160128
  Receipt Date: 20160128
  Transmission Date: 20160526
  Serious: No
  Sender: FDA-Public Use
  Company Number: US-AMGEN-USASL2016007200

PATIENT
  Age: 74 Year
  Sex: Female

DRUGS (1)
  1. ENBREL [Suspect]
     Active Substance: ETANERCEPT
     Indication: PSORIATIC ARTHROPATHY
     Dosage: UNK, 2 TIMES/WK (2 INJECTIONS ON THE SAME DAY ONCE A WEEK)
     Route: 065
     Dates: start: 20150403

REACTIONS (3)
  - Intentional product misuse [Unknown]
  - Drug ineffective [Unknown]
  - Rubber sensitivity [Unknown]

NARRATIVE: CASE EVENT DATE: 20150403
